FAERS Safety Report 11349607 (Version 1)
Quarter: 2015Q3

REPORT INFORMATION
  Report Type: Spontaneous
  Country: US (occurrence: US)
  Receive Date: 20150807
  Receipt Date: 20150807
  Transmission Date: 20151125
  Serious: No
  Sender: FDA-Public Use
  Company Number: US-ACCORD-027744

PATIENT
  Age: 83 Year
  Sex: Female

DRUGS (1)
  1. ANASTROZOLE. [Suspect]
     Active Substance: ANASTROZOLE
     Indication: BREAST CANCER
     Route: 048
     Dates: start: 2010

REACTIONS (3)
  - Osteopenia [Recovered/Resolved]
  - Osteoporosis [Recovered/Resolved]
  - Arthropathy [Unknown]
